FAERS Safety Report 7787614-6 (Version None)
Quarter: 2011Q3

REPORT INFORMATION
  Report Type: 
  Country: None (occurrence: None)
  Receive Date: 20110929
  Receipt Date: 20100602
  Transmission Date: 20111222
  Serious: Yes (Hospitalization, Other)
  Sender: FDA-Public Use
  Company Number: US-BAYER-200942481NA

PATIENT
  Age: 48 Year
  Sex: Female
  Weight: 77.098 kg

DRUGS (15)
  1. YAZ [Suspect]
     Indication: CONTRACEPTION
     Dosage: UNK
     Dates: start: 20071023, end: 20071218
  2. YAZ [Suspect]
     Indication: MOOD SWINGS
  3. ACYCLOVIR [Concomitant]
     Indication: TENDONITIS
     Dosage: UNK
     Dates: start: 20071227
  4. ACYCLOVIR [Concomitant]
     Indication: PAIN IN EXTREMITY
  5. PIROXICAM [Concomitant]
     Indication: TENDONITIS
     Dosage: 20 MG, QD
     Dates: start: 20071212
  6. KENALOG [Concomitant]
     Indication: PAIN IN EXTREMITY
  7. MARCAINE [Concomitant]
     Indication: TENDONITIS
     Dosage: UNK
     Dates: start: 20071212
  8. PIROXICAM [Concomitant]
     Indication: PAIN IN EXTREMITY
  9. DEXAMETHASONE [Concomitant]
     Indication: TENDONITIS
     Dosage: UNK
     Dates: start: 20071212
  10. DEXAMETHASONE [Concomitant]
     Indication: PAIN IN EXTREMITY
  11. IBUPROFEN [Concomitant]
  12. YAZ [Suspect]
     Indication: MENSTRUATION IRREGULAR
  13. MARCAINE [Concomitant]
     Indication: PAIN IN EXTREMITY
  14. YAZ [Suspect]
     Indication: PREMENSTRUAL SYNDROME
  15. KENALOG [Concomitant]
     Indication: TENDONITIS
     Dosage: 0.5 UNK, UNK
     Dates: start: 20071212

REACTIONS (7)
  - OEDEMA PERIPHERAL [None]
  - DEEP VEIN THROMBOSIS [None]
  - VENOUS INSUFFICIENCY [None]
  - HEADACHE [None]
  - PULMONARY EMBOLISM [None]
  - PAIN IN EXTREMITY [None]
  - JOINT SWELLING [None]
